FAERS Safety Report 15613627 (Version 1)
Quarter: 2018Q4

REPORT INFORMATION
  Report Type: Spontaneous
  Country: US (occurrence: US)
  Receive Date: 20181113
  Receipt Date: 20181113
  Transmission Date: 20190205
  Serious: Yes (Hospitalization, Other)
  Sender: FDA-Public Use
  Company Number: US-NOVOPROD-631324

PATIENT
  Age: 72 Year
  Sex: Female

DRUGS (2)
  1. LANTUS [Concomitant]
     Active Substance: INSULIN GLARGINE
     Indication: TYPE 2 DIABETES MELLITUS
     Dosage: UNK
     Route: 058
  2. NOVOLIN R [Suspect]
     Active Substance: INSULIN HUMAN
     Indication: TYPE 2 DIABETES MELLITUS
     Dosage: UNK
     Route: 058
     Dates: start: 2013

REACTIONS (14)
  - Cataract [Unknown]
  - Feeling cold [Not Recovered/Not Resolved]
  - Logorrhoea [Unknown]
  - Dyspnoea [Recovering/Resolving]
  - Intentional dose omission [Unknown]
  - Cardiac arrest [Recovered/Resolved]
  - Chest pain [Recovering/Resolving]
  - Glycosylated haemoglobin increased [Unknown]
  - Cardiac disorder [Unknown]
  - Blood glucose increased [Recovered/Resolved]
  - Arthralgia [Unknown]
  - Dysarthria [Unknown]
  - Pain in extremity [Not Recovered/Not Resolved]
  - Blood glucose increased [Recovered/Resolved]

NARRATIVE: CASE EVENT DATE: 2015
